FAERS Safety Report 9792904 (Version 1)
Quarter: 2014Q1

REPORT INFORMATION
  Report Type: Spontaneous
  Country: US (occurrence: US)
  Receive Date: 20140102
  Receipt Date: 20140102
  Transmission Date: 20141002
  Serious: No
  Sender: FDA-Public Use
  Company Number: US-SA-2013SA128890

PATIENT
  Age: 77 Year
  Sex: Female

DRUGS (13)
  1. AUBAGIO [Suspect]
     Route: 065
     Dates: start: 20131003
  2. MULTIVITAMINS [Concomitant]
     Indication: NUTRITIONAL SUPPLEMENTATION
     Dosage: DOSE: 1 TB
     Route: 048
     Dates: start: 20120823
  3. ATENOLOL [Concomitant]
     Indication: HYPERTENSION
     Route: 048
     Dates: start: 20120823
  4. HYDROCHLOROTHIAZIDE WITH TRIAMTERENE [Concomitant]
     Indication: HYPERTENSION
     Dosage: DOSE: 75-50 MG
     Route: 048
     Dates: start: 20120823
  5. HYDROCHLOROTHIAZIDE WITH TRIAMTERENE [Concomitant]
     Indication: OEDEMA
     Dosage: DOSE: 75-50 MG
     Route: 048
     Dates: start: 20120823
  6. SIMVASTATIN [Concomitant]
     Indication: BLOOD CHOLESTEROL INCREASED
     Route: 048
     Dates: start: 20120823
  7. ADVAIR DISKUS [Concomitant]
     Indication: ASTHMA
     Dosage: DOSE: 250-50 MCG
     Route: 055
     Dates: start: 20120823
  8. SALBUTAMOL SULFATE [Concomitant]
     Indication: ASTHMA
     Dosage: 108(90MCG BASE)
     Route: 055
     Dates: start: 20120823
  9. GABAPENTIN [Concomitant]
     Indication: NEUROPATHY PERIPHERAL
     Route: 048
     Dates: start: 20130323
  10. CARAFATE [Concomitant]
     Indication: ABDOMINAL DISCOMFORT
     Route: 048
     Dates: start: 20130919
  11. AUBAGIO [Suspect]
     Indication: MULTIPLE SCLEROSIS
     Route: 065
     Dates: start: 20130718, end: 20130919
  12. AUBAGIO [Suspect]
     Route: 065
     Dates: start: 20130718, end: 20130919
  13. AUBAGIO [Suspect]
     Indication: MULTIPLE SCLEROSIS
     Route: 065
     Dates: start: 20131003

REACTIONS (1)
  - Alopecia [Unknown]
